FAERS Safety Report 9109653 (Version 1)
Quarter: 2013Q1

REPORT INFORMATION
  Report Type: Spontaneous
  Country: US (occurrence: US)
  Receive Date: 20130222
  Receipt Date: 20130222
  Transmission Date: 20140127
  Serious: Yes (Other)
  Sender: FDA-Public Use
  Company Number: US-PFIZER INC-2013064913

PATIENT
  Sex: Female

DRUGS (4)
  1. FLECTOR [Suspect]
     Dosage: UNK
  2. ASPIRIN ^BAYER^ [Suspect]
     Dosage: UNK
  3. DIOVAN (VALSARTAN) [Suspect]
     Dosage: UNK
  4. DEPAKOTE [Suspect]
     Dosage: UNK

REACTIONS (1)
  - Gastritis [Unknown]
